FAERS Safety Report 16000340 (Version 1)
Quarter: 2019Q1

REPORT INFORMATION
  Report Type: Report from Study
  Country: US (occurrence: US)
  Receive Date: 20190225
  Receipt Date: 20190225
  Transmission Date: 20190418
  Serious: Yes (Hospitalization)
  Sender: FDA-Public Use
  Company Number: US-GILEAD-2019-0390566

PATIENT
  Age: 67 Year
  Sex: Male

DRUGS (2)
  1. RANOLAZINE. [Suspect]
     Active Substance: RANOLAZINE
     Indication: CORONARY ARTERY DISEASE
     Dosage: 100 MG, BID
     Route: 048
     Dates: start: 20150415, end: 20190208
  2. RANOLAZINE. [Suspect]
     Active Substance: RANOLAZINE
     Indication: ANGINA PECTORIS

REACTIONS (3)
  - Product use issue [Not Recovered/Not Resolved]
  - Off label use [Unknown]
  - Knee operation [Unknown]

NARRATIVE: CASE EVENT DATE: 20190208
